FAERS Safety Report 12283382 (Version 2)
Quarter: 2019Q3

REPORT INFORMATION
  Report Type: Report from Study
  Country: CA (occurrence: CA)
  Receive Date: 20160419
  Receipt Date: 20190916
  Transmission Date: 20191004
  Serious: No
  Sender: FDA-Public Use
  Company Number: CA-CELGENEUS-CAN-2014120344

PATIENT
  Age: 77 Year
  Sex: Male
  Weight: 57.7 kg

DRUGS (90)
  1. CC-5013 [Suspect]
     Active Substance: LENALIDOMIDE
     Indication: PLASMA CELL MYELOMA
     Dosage: 10 MILLIGRAM
     Route: 048
     Dates: start: 20100930
  2. ASPIRIN. [Concomitant]
     Active Substance: ASPIRIN
     Indication: BACK PAIN
  3. LORAZEPAM. [Concomitant]
     Active Substance: LORAZEPAM
     Indication: INSOMNIA
     Route: 048
     Dates: start: 20101003, end: 20111016
  4. NITROGLYCERIN. [Concomitant]
     Active Substance: NITROGLYCERIN
     Indication: ANGINA PECTORIS
     Route: 048
     Dates: start: 20101002, end: 20101002
  5. CIPROFLOXACIN. [Concomitant]
     Active Substance: CIPROFLOXACIN
     Indication: PROPHYLAXIS URINARY TRACT INFECTION
     Dosage: 1000 MILLIGRAM
     Route: 048
     Dates: start: 20110614, end: 20110622
  6. PRO-AZYTHROMYCINE [Concomitant]
     Indication: EAR INFECTION
     Dosage: 250 MILLIGRAM
     Route: 048
     Dates: start: 20120528, end: 20120531
  7. MOXIFLOXACIN. [Concomitant]
     Active Substance: MOXIFLOXACIN
     Indication: CATARACT
     Dosage: 4 DROPS
     Route: 065
     Dates: start: 20130107, end: 20130113
  8. NEPAFENAC [Concomitant]
     Active Substance: NEPAFENAC
     Dosage: 2 DROPS
     Route: 065
     Dates: start: 20130326, end: 20130401
  9. MIRABEGRON [Concomitant]
     Active Substance: MIRABEGRON
     Indication: BENIGN PROSTATIC HYPERPLASIA
     Dosage: 25 MILLIGRAM
     Route: 048
     Dates: start: 20130706, end: 20130810
  10. RAN CLARITHYROMYCIN [Concomitant]
     Indication: COUGH
     Dosage: 500 MILLIGRAM
     Route: 048
     Dates: start: 20140429, end: 20140503
  11. CALCIUM [Concomitant]
     Active Substance: CALCIUM
     Indication: SUPPLEMENTATION THERAPY
     Dosage: 1000 MILLIGRAM
     Route: 048
     Dates: start: 20140710
  12. ANCEF [Concomitant]
     Active Substance: CEFAZOLIN SODIUM
     Indication: INFECTION PROPHYLAXIS
     Dosage: 2 MILLIGRAM
     Route: 041
     Dates: start: 20141216, end: 20141216
  13. FENTANYL. [Concomitant]
     Active Substance: FENTANYL
     Indication: SURGERY
     Route: 065
     Dates: start: 20141216, end: 20141217
  14. CEFAZOLIN [Concomitant]
     Active Substance: CEFAZOLIN
     Indication: ANTIBIOTIC PROPHYLAXIS
     Dosage: 2 MILLIGRAM
     Route: 041
     Dates: start: 20141216, end: 20141216
  15. DEXAMETHASONE. [Suspect]
     Active Substance: DEXAMETHASONE
     Indication: PLASMA CELL MYELOMA
     Dosage: 40 MILLIGRAM
     Route: 048
     Dates: start: 20100930
  16. ASPIRIN. [Concomitant]
     Active Substance: ASPIRIN
     Indication: INFLUENZA
     Route: 048
     Dates: start: 2007
  17. FUROSEMIDE. [Concomitant]
     Active Substance: FUROSEMIDE
     Indication: PLEURAL EFFUSION
     Dosage: 1 IU (INTERNATIONAL UNIT)
     Route: 048
     Dates: start: 20101223, end: 20110104
  18. FUROSEMIDE. [Concomitant]
     Active Substance: FUROSEMIDE
     Dosage: 20 MILLIGRAM
     Route: 048
     Dates: start: 20120309, end: 20140309
  19. DOCUSATE SODIUM. [Concomitant]
     Active Substance: DOCUSATE SODIUM
     Indication: CONSTIPATION
     Dosage: 100 MILLIGRAM
     Route: 048
     Dates: start: 20110106
  20. SENNOSIDES. [Concomitant]
     Active Substance: SENNOSIDES
     Indication: CONSTIPATION
     Route: 048
     Dates: start: 20110106
  21. CIPROFLOXACIN. [Concomitant]
     Active Substance: CIPROFLOXACIN
     Indication: INFECTION PROPHYLAXIS
     Dosage: 500 MILLIGRAM
     Route: 048
     Dates: start: 20130703, end: 20130705
  22. TAMSULOSINE PROPIONATE [Concomitant]
     Indication: BENIGN PROSTATIC HYPERPLASIA
     Dosage: .4 MILLIGRAM
     Route: 048
     Dates: start: 20110609
  23. NEPAFENAC [Concomitant]
     Active Substance: NEPAFENAC
     Dosage: 3 DROPS
     Route: 065
     Dates: start: 20130114, end: 20130120
  24. NEPAFENAC [Concomitant]
     Active Substance: NEPAFENAC
     Dosage: 2 DROPS
     Route: 065
     Dates: start: 20130121, end: 20130127
  25. PREDNISOLONE. [Concomitant]
     Active Substance: PREDNISOLONE
     Dosage: 3 DROPS
     Route: 065
     Dates: start: 20130319, end: 20130325
  26. PREDNISOLONE. [Concomitant]
     Active Substance: PREDNISOLONE
     Dosage: 2 DROPS
     Route: 065
     Dates: start: 20130326, end: 20130401
  27. TYLENOL NIGHT TIME [Concomitant]
     Indication: ABDOMINAL PAIN
     Route: 048
     Dates: start: 20141216
  28. VITAMIN D [Concomitant]
     Active Substance: VITAMIN D NOS
     Indication: SUPPLEMENTATION THERAPY
     Dosage: 800 IU (INTERNATIONAL UNIT)
     Route: 048
     Dates: start: 20140710
  29. METOPROLOL. [Concomitant]
     Active Substance: METOPROLOL
     Indication: SURGERY
     Dosage: 50 MILLIGRAM
     Route: 048
     Dates: start: 20141125
  30. CC-5013 [Suspect]
     Active Substance: LENALIDOMIDE
     Dosage: 10 MILLIGRAM
     Route: 048
     Dates: start: 20150123
  31. DEXAMETHASONE. [Suspect]
     Active Substance: DEXAMETHASONE
     Route: 048
     Dates: start: 20140807
  32. ZOPICLONE [Concomitant]
     Active Substance: ZOPICLONE
     Indication: INSOMNIA
     Route: 048
     Dates: start: 20110524, end: 20111003
  33. PREDNISOLONE. [Concomitant]
     Active Substance: PREDNISOLONE
     Indication: CATARACT
     Dosage: 4 DROPS
     Route: 065
     Dates: start: 20130107, end: 20130113
  34. ACETAMINOPHEN. [Concomitant]
     Active Substance: ACETAMINOPHEN
     Indication: NASOPHARYNGITIS
     Route: 048
     Dates: start: 20130118, end: 20130119
  35. ACETAMINOPHEN. [Concomitant]
     Active Substance: ACETAMINOPHEN
     Indication: PAIN
     Dosage: 1300 MILLIGRAM
     Route: 048
     Dates: start: 20140206
  36. CLOBETASOL PROPIONATE. [Concomitant]
     Active Substance: CLOBETASOL PROPIONATE
     Indication: ROSACEA
     Dosage: 1 PERCENT
     Route: 061
     Dates: start: 20130308, end: 20130403
  37. TYLENOL NIGHT TIME [Concomitant]
     Indication: INSOMNIA
     Route: 048
     Dates: start: 20131003, end: 20140319
  38. NAPROXEN. [Concomitant]
     Active Substance: NAPROXEN
     Indication: ABDOMINAL PAIN
     Dosage: 1000 MILLIGRAM
     Route: 048
     Dates: start: 20141216, end: 20141217
  39. BUPIVACAINE. [Concomitant]
     Active Substance: BUPIVACAINE
     Indication: SURGERY
     Route: 065
     Dates: start: 20141216, end: 20141217
  40. ASPIRIN. [Concomitant]
     Active Substance: ASPIRIN
     Indication: MUSCULOSKELETAL PAIN
  41. CIPROFLOXACIN. [Concomitant]
     Active Substance: CIPROFLOXACIN
     Indication: EAR INFECTION
     Dosage: 1000 MILLIGRAM
     Route: 048
     Dates: start: 20120621, end: 20120627
  42. NEPAFENAC [Concomitant]
     Active Substance: NEPAFENAC
     Dosage: 3 DROPS
     Route: 065
     Dates: start: 20130319, end: 20130325
  43. METRONIDAZOLE. [Concomitant]
     Active Substance: METRONIDAZOLE
     Indication: INFECTION PROPHYLAXIS
     Dosage: 500 MILLIGRAM
     Route: 041
     Dates: start: 20141216, end: 20141216
  44. POTASSIUM [Concomitant]
     Active Substance: POTASSIUM
     Indication: SURGERY
     Dosage: MMOL/L
     Route: 041
     Dates: start: 20141217, end: 20141218
  45. CELECOXIB. [Concomitant]
     Active Substance: CELECOXIB
     Route: 048
     Dates: start: 20131008, end: 20131025
  46. METAMUCIL [Concomitant]
     Active Substance: PLANTAGO SEED
     Indication: CONSTIPATION
     Route: 048
     Dates: start: 20101015, end: 20101230
  47. NEPAFENAC [Concomitant]
     Active Substance: NEPAFENAC
     Indication: CATARACT
     Dosage: 4 DROPS
     Route: 065
     Dates: start: 20130107, end: 20130113
  48. PREDNISOLONE. [Concomitant]
     Active Substance: PREDNISOLONE
     Dosage: 2 DROPS
     Route: 065
     Dates: start: 20130121, end: 20130127
  49. TRAMADOL. [Concomitant]
     Active Substance: TRAMADOL
     Indication: HERNIA REPAIR
     Route: 048
     Dates: start: 20130213, end: 20130213
  50. ROSUVASTATIN. [Concomitant]
     Active Substance: ROSUVASTATIN
     Indication: HYPERCHOLESTEROLAEMIA
     Route: 048
     Dates: start: 2008
  51. NITROGLYCERIN. [Concomitant]
     Active Substance: NITROGLYCERIN
     Indication: CHEST PAIN
     Route: 048
     Dates: start: 20101017, end: 20101017
  52. NITROGLYCERIN. [Concomitant]
     Active Substance: NITROGLYCERIN
     Route: 048
     Dates: start: 20110904, end: 20111008
  53. HEPARIN [Concomitant]
     Active Substance: HEPARIN SODIUM
     Dosage: 10000 IU (INTERNATIONAL UNIT)
     Route: 058
     Dates: start: 20141216, end: 20141219
  54. NEPAFENAC [Concomitant]
     Active Substance: NEPAFENAC
     Dosage: 4 DROPS
     Route: 065
     Dates: start: 20130313, end: 20130318
  55. ZOLPIDEM [Concomitant]
     Active Substance: ZOLPIDEM TARTRATE
     Indication: INSOMNIA
     Route: 048
     Dates: start: 20130926, end: 20140129
  56. LASIX [Concomitant]
     Active Substance: FUROSEMIDE
     Indication: OEDEMA PERIPHERAL
     Dosage: 20 MILLIGRAM
     Route: 048
     Dates: start: 20140713
  57. DEXAMETHASONE. [Suspect]
     Active Substance: DEXAMETHASONE
     Route: 048
     Dates: start: 20141031
  58. TRAZODONE CHLORHYDRATE [Concomitant]
     Indication: INSOMNIA
     Route: 048
     Dates: start: 20101025, end: 20110218
  59. INFLUENZA VACCINE [Concomitant]
     Active Substance: INFLUENZA VIRUS VACCINE
     Indication: INFLUENZA
     Route: 058
     Dates: start: 20101103, end: 20101103
  60. APO-HYDROXYZINE [Concomitant]
     Active Substance: HYDROXYZINE HYDROCHLORIDE
     Indication: VASCULAR PURPURA
     Dosage: 25 MILLIGRAM
     Route: 048
     Dates: start: 20110107, end: 20110119
  61. PAMIDRONATE DISODIUM. [Concomitant]
     Active Substance: PAMIDRONATE DISODIUM
     Indication: SKELETAL INJURY
     Route: 041
     Dates: start: 20111101, end: 20120120
  62. PAMIDRONATE DISODIUM. [Concomitant]
     Active Substance: PAMIDRONATE DISODIUM
     Route: 041
     Dates: start: 20140807
  63. ZOPICLONE [Concomitant]
     Active Substance: ZOPICLONE
     Route: 048
     Dates: start: 20101105, end: 20110409
  64. FINASTERIDE. [Concomitant]
     Active Substance: FINASTERIDE
     Indication: BENIGN PROSTATIC HYPERPLASIA
     Dosage: 5 MILLIGRAM
     Route: 048
     Dates: start: 20110609
  65. HEPARIN [Concomitant]
     Active Substance: HEPARIN SODIUM
     Indication: THROMBOSIS PROPHYLAXIS
     Route: 041
     Dates: start: 20120226, end: 20120227
  66. CIPRODEX [Concomitant]
     Active Substance: CIPROFLOXACIN HYDROCHLORIDE\DEXAMETHASONE
     Indication: EAR INFECTION
     Dosage: 8 DROPS
     Route: 065
     Dates: start: 20120528, end: 20120606
  67. NEPAFENAC [Concomitant]
     Active Substance: NEPAFENAC
     Dosage: 1 DROPS
     Route: 065
     Dates: start: 20130128, end: 20130203
  68. PREDNISOLONE. [Concomitant]
     Active Substance: PREDNISOLONE
     Dosage: 3 DROPS
     Route: 065
     Dates: start: 20130114, end: 20130120
  69. PREDNISOLONE. [Concomitant]
     Active Substance: PREDNISOLONE
     Dosage: 1 DROPS
     Route: 065
     Dates: start: 20130128, end: 20130203
  70. PREDNISOLONE. [Concomitant]
     Active Substance: PREDNISOLONE
     Dosage: 4 DROPS
     Route: 065
     Dates: start: 20130312, end: 20130318
  71. PREDNISOLONE. [Concomitant]
     Active Substance: PREDNISOLONE
     Dosage: 1 DROPS
     Route: 065
     Dates: start: 20130402, end: 20130408
  72. ROBAX PLATINUM [Concomitant]
     Active Substance: IBUPROFEN\METHOCARBAMOL
     Indication: PAIN
     Dosage: 2 TABLET
     Route: 048
     Dates: start: 20140612
  73. FLEET ENEMA SODIUM PHOSPHATE [Concomitant]
     Indication: SURGERY
     Dosage: 130 MILLILITER
     Route: 054
     Dates: start: 20141216, end: 20141216
  74. DILAUDID [Concomitant]
     Active Substance: HYDROMORPHONE HYDROCHLORIDE
     Indication: ABDOMINAL PAIN
     Route: 048
     Dates: start: 20141218, end: 20141218
  75. CC-5013 [Suspect]
     Active Substance: LENALIDOMIDE
     Dosage: 10 MILLIGRAM
     Route: 048
     Dates: start: 20141031, end: 20141121
  76. CELECOXIB. [Concomitant]
     Active Substance: CELECOXIB
     Indication: ARTHRALGIA
     Route: 048
     Dates: start: 2008, end: 20100930
  77. ASPIRIN. [Concomitant]
     Active Substance: ASPIRIN
     Indication: ARTHRALGIA
     Route: 048
     Dates: start: 20100930, end: 20111021
  78. ASPIRIN. [Concomitant]
     Active Substance: ASPIRIN
     Indication: CARDIAC DISORDER
  79. LORAZEPAM. [Concomitant]
     Active Substance: LORAZEPAM
     Route: 048
     Dates: start: 20120301, end: 20131231
  80. PNEUMOCOCCAL VACCINE POLYVALENT NOS [Concomitant]
     Active Substance: PNEUMOCOCCAL VACCINE POLYVALENT
     Indication: PNEUMONIA
     Route: 058
     Dates: start: 20101125, end: 20101125
  81. PAMIDRONATE DISODIUM. [Concomitant]
     Active Substance: PAMIDRONATE DISODIUM
     Route: 041
     Dates: start: 20120414, end: 20140806
  82. IBUPROFEN. [Concomitant]
     Active Substance: IBUPROFEN
     Indication: NECK PAIN
     Route: 048
     Dates: start: 20111015
  83. MUPIROCIN. [Concomitant]
     Active Substance: MUPIROCIN
     Indication: ANTIBIOTIC THERAPY
     Dosage: 4 PERCENT
     Route: 061
     Dates: start: 20120209, end: 20120215
  84. AMOXICILLIN. [Concomitant]
     Active Substance: AMOXICILLIN
     Indication: INFECTION PROPHYLAXIS
     Dosage: 1500 MILLIGRAM
     Route: 048
     Dates: start: 20120216, end: 20120216
  85. MOXIFLOXACIN. [Concomitant]
     Active Substance: MOXIFLOXACIN
     Dosage: 4 DROPS
     Route: 065
     Dates: start: 20130312, end: 20130318
  86. NEPAFENAC [Concomitant]
     Active Substance: NEPAFENAC
     Dosage: 1 DROPS
     Route: 065
     Dates: start: 20130402, end: 20130408
  87. TEVA-DOXYCYCLINE [Concomitant]
     Active Substance: DOXYCYCLINE
     Indication: ROSACEA
     Dosage: 50 MILLIGRAM
     Route: 048
     Dates: start: 20130308, end: 20130410
  88. IMOVANE [Concomitant]
     Active Substance: ZOPICLONE
     Indication: INSOMNIA
     Route: 048
     Dates: start: 20140710
  89. ATIVAN [Concomitant]
     Active Substance: LORAZEPAM
     Indication: INSOMNIA
     Route: 048
     Dates: start: 20140711
  90. VOLUVEN [Concomitant]
     Active Substance: HYDROXYETHYL STARCH 130/0.4
     Indication: ANTIBIOTIC PROPHYLAXIS
     Route: 041
     Dates: start: 20141217, end: 20141218

REACTIONS (1)
  - Colon dysplasia [Recovered/Resolved with Sequelae]

NARRATIVE: CASE EVENT DATE: 20141104
